FAERS Safety Report 18595938 (Version 1)
Quarter: 2020Q4

REPORT INFORMATION
  Report Type: Spontaneous
  Country: US (occurrence: US)
  Receive Date: 20201209
  Receipt Date: 20201209
  Transmission Date: 20210114
  Serious: No
  Sender: FDA-Public Use
  Company Number: US-SUPERNUS PHARMACEUTICALS, INC.-2020SUP00187

PATIENT
  Sex: Female
  Weight: 81.63 kg

DRUGS (3)
  1. TROKENDI XR [Suspect]
     Active Substance: TOPIRAMATE
     Indication: MIGRAINE
     Dosage: 1 CAPSULES, 1X/DAY
     Route: 048
     Dates: start: 2020, end: 2020
  2. TROKENDI XR [Suspect]
     Active Substance: TOPIRAMATE
     Dosage: 150 MG, 1X/DAY
     Route: 048
     Dates: start: 20200720
  3. TROKENDI XR [Suspect]
     Active Substance: TOPIRAMATE
     Indication: MIGRAINE
     Dosage: 100 MG, 1X/DAY
     Route: 048
     Dates: start: 2020, end: 20200719

REACTIONS (1)
  - Therapeutic product effect incomplete [Recovering/Resolving]

NARRATIVE: CASE EVENT DATE: 2020
